FAERS Safety Report 9850114 (Version 3)
Quarter: 2014Q2

REPORT INFORMATION
  Report Type: Spontaneous
  Country: GR (occurrence: GR)
  Receive Date: 20140128
  Receipt Date: 20140618
  Transmission Date: 20141212
  Serious: Yes (Other)
  Sender: FDA-Public Use
  Company Number: GR-ABBVIE-14P-066-1195291-00

PATIENT
  Age: 83 Year
  Sex: Female
  Weight: 70 kg

DRUGS (2)
  1. KLARICID [Suspect]
     Indication: BRONCHITIS
     Dates: start: 2013
  2. KLARICID [Suspect]
     Route: 048
     Dates: start: 20140105, end: 20140106

REACTIONS (2)
  - Thrombosis [Recovered/Resolved]
  - Oedema peripheral [Recovered/Resolved]
